FAERS Safety Report 25683089 (Version 1)
Quarter: 2025Q3

REPORT INFORMATION
  Report Type: Spontaneous
  Country: US (occurrence: US)
  Receive Date: 20250814
  Receipt Date: 20250814
  Transmission Date: 20251020
  Serious: Yes (Death, Other)
  Sender: AMGEN
  Company Number: US-AMGEN-USASP2025157935

PATIENT

DRUGS (2)
  1. RITUXIMAB [Suspect]
     Active Substance: RITUXIMAB
     Indication: Richter^s syndrome
     Route: 065
  2. PREDNISONE [Suspect]
     Active Substance: PREDNISONE
     Indication: Richter^s syndrome
     Route: 065

REACTIONS (16)
  - Infection [Fatal]
  - Richter^s syndrome [Fatal]
  - Enterococcal infection [Fatal]
  - Septic shock [Fatal]
  - Fungal infection [Fatal]
  - Pneumonia [Fatal]
  - Rectal haemorrhage [Unknown]
  - Neutropenia [Unknown]
  - Thrombocytopenia [Unknown]
  - Febrile neutropenia [Unknown]
  - Adverse event [Unknown]
  - Hiccups [Unknown]
  - Anaemia [Unknown]
  - Therapy partial responder [Unknown]
  - Treatment failure [Unknown]
  - Disease progression [Unknown]
